FAERS Safety Report 8581135-9 (Version None)
Quarter: 2012Q3

REPORT INFORMATION
  Report Type: 
  Country: None (occurrence: None)
  Receive Date: 20120727
  Receipt Date: 20120712
  Transmission Date: 20120928
  Serious: Yes (Other)
  Sender: FDA-Public Use
  Company Number: JPI-P-021879

PATIENT
  Age: 63 Year
  Sex: Female
  Weight: 64.5922 kg

DRUGS (8)
  1. XYREM [Suspect]
     Indication: NARCOLEPSY
     Dosage: SEE IMAGE: ORAL
     Route: 048
     Dates: start: 20080320, end: 20080327
  2. XYREM [Suspect]
     Indication: NARCOLEPSY
     Dosage: SEE IMAGE: ORAL
     Route: 048
     Dates: start: 20080304, end: 20080311
  3. XYREM [Suspect]
     Indication: NARCOLEPSY
     Dosage: SEE IMAGE: ORAL
     Route: 048
     Dates: start: 20080312, end: 20080319
  4. XYREM [Suspect]
     Indication: NARCOLEPSY
     Dosage: SEE IMAGE: ORAL
     Route: 048
     Dates: start: 20080328
  5. FOLIC ACID [Concomitant]
  6. MODAFINIL [Concomitant]
  7. ASPIRIN [Concomitant]
  8. HYDROCODONE BITARTRATE + ACETAMINOPHEN [Concomitant]

REACTIONS (9)
  - LOSS OF CONSCIOUSNESS [None]
  - HEART RATE INCREASED [None]
  - DYSPNOEA [None]
  - CARDIAC ABLATION [None]
  - EPISTAXIS [None]
  - CYSTITIS [None]
  - POOR QUALITY SLEEP [None]
  - SOMNOLENCE [None]
  - HYPERSOMNIA [None]
